FAERS Safety Report 5903446-5 (Version None)
Quarter: 2008Q3

REPORT INFORMATION
  Report Type: 
  Country: None (occurrence: None)
  Receive Date: 20080926
  Receipt Date: 20080917
  Transmission Date: 20090109
  Serious: Yes (Other)
  Sender: FDA-Public Use
  Company Number: CHPA2008US15684

PATIENT
  Sex: Female

DRUGS (1)
  1. VOLTAREN [Suspect]
     Indication: ARTHRALGIA
     Dosage: TOPICAL
     Route: 061

REACTIONS (3)
  - CONFUSIONAL STATE [None]
  - DYSARTHRIA [None]
  - FACIAL PALSY [None]
